FAERS Safety Report 4874225-5 (Version None)
Quarter: 2006Q1

REPORT INFORMATION
  Report Type: 
  Country: None (occurrence: None)
  Receive Date: 20060106
  Receipt Date: 19970214
  Transmission Date: 20060701
  Serious: Yes (Hospitalization)
  Sender: FDA-Public Use
  Company Number: US-MERCK-97021260

PATIENT
  Age: 52 Year
  Sex: Female

DRUGS (10)
  1. [COMPOSITION UNSPECIFIED] [Concomitant]
     Route: 065
  2. MYLANTA + MYLANTA DS [Concomitant]
     Route: 065
  3. FLOVENT [Concomitant]
     Route: 065
  4. FOSAMAX [Suspect]
     Indication: OSTEOPOROSIS
     Route: 048
     Dates: end: 20050101
  5. FOSAMAX [Suspect]
     Route: 048
     Dates: start: 19960101, end: 19961201
  6. FOSAMAX [Suspect]
     Route: 048
     Dates: start: 20050101
  7. BENADRYL [Concomitant]
     Route: 065
  8. VITAMINS [Concomitant]
     Route: 065
  9. TUMS [Concomitant]
     Route: 065
  10. PROVERA [Concomitant]
     Route: 065

REACTIONS (8)
  - CHEST PAIN [None]
  - DRUG ADMINISTRATION ERROR [None]
  - DYSPEPSIA [None]
  - DYSPHAGIA [None]
  - LOWER LIMB FRACTURE [None]
  - OESOPHAGEAL PAIN [None]
  - THROMBOSIS [None]
  - WEIGHT INCREASED [None]
